FAERS Safety Report 24619479 (Version 1)
Quarter: 2024Q4

REPORT INFORMATION
  Report Type: Spontaneous
  Country: FR (occurrence: FR)
  Receive Date: 20241114
  Receipt Date: 20241114
  Transmission Date: 20250114
  Serious: Yes (Hospitalization, Other)
  Sender: MERCK
  Company Number: None

PATIENT
  Age: 55 Year
  Sex: Male
  Weight: 76 kg

DRUGS (7)
  1. KEYTRUDA [Suspect]
     Active Substance: PEMBROLIZUMAB
     Indication: Non-small cell lung cancer
     Dosage: 200 MILLIGRAM, Q3W, STRENGTH: 25 MG/ML
     Route: 042
     Dates: start: 20230927, end: 20240222
  2. PEMETREXED [Suspect]
     Active Substance: PEMETREXED
     Indication: Non-small cell lung cancer
     Dosage: 500 MILLIGRAM/SQ. METER, Q3W
     Route: 042
     Dates: start: 20230927, end: 20240222
  3. XGEVA [Concomitant]
     Active Substance: DENOSUMAB
     Indication: Skeletal injury
     Dosage: UNK
     Route: 058
     Dates: start: 20231017
  4. ELIQUIS [Concomitant]
     Active Substance: APIXABAN
     Indication: Brachiocephalic vein thrombosis
     Dosage: 1 DOSAGE FORM, Q12H
     Route: 048
     Dates: start: 20230201
  5. ZOPICLONE [Concomitant]
     Active Substance: ZOPICLONE
     Indication: Product used for unknown indication
     Dosage: 3.75 MILLIGRAM, PRN
     Route: 048
     Dates: start: 20240201
  6. DAFALGAN CODEINE [Concomitant]
     Active Substance: ACETAMINOPHEN\CODEINE PHOSPHATE
     Indication: Pain
     Dosage: UNK, PRN
     Route: 048
     Dates: start: 202310
  7. HYDROCORTISONE [Concomitant]
     Active Substance: HYDROCORTISONE
     Indication: Adrenal insufficiency
     Dosage: 40 MILLIGRAM, QD
     Route: 048
     Dates: start: 20240215

REACTIONS (3)
  - Acute kidney injury [Not Recovered/Not Resolved]
  - Colitis [Recovered/Resolved]
  - Mixed liver injury [Recovered/Resolved]

NARRATIVE: CASE EVENT DATE: 20240215
